FAERS Safety Report 5794064-0 (Version None)
Quarter: 2008Q2

REPORT INFORMATION
  Report Type: 
  Country: None (occurrence: None)
  Receive Date: 20080627
  Receipt Date: 20080619
  Transmission Date: 20081010
  Serious: Yes (Other)
  Sender: FDA-Public Use
  Company Number: FR-ABBOTT-08P-056-0444501-00

PATIENT
  Sex: Male
  Weight: 24 kg

DRUGS (2)
  1. MICROPAKINE GRANULES [Suspect]
     Indication: CONVULSION
     Route: 048
     Dates: start: 20071201
  2. THENOATE SODIUM [Interacting]
     Indication: NASOPHARYNGITIS
     Route: 054
     Dates: start: 20080307, end: 20080307

REACTIONS (2)
  - DRUG INTERACTION [None]
  - EPILEPSY [None]
